FAERS Safety Report 23170731 (Version 1)
Quarter: 2023Q4

REPORT INFORMATION
  Report Type: Report from Study
  Country: JP (occurrence: JP)
  Receive Date: 20231110
  Receipt Date: 20231110
  Transmission Date: 20240109
  Serious: Yes (Hospitalization)
  Sender: FDA-Public Use
  Company Number: JP-Eisai-EC-2023-152486

PATIENT
  Age: 73 Year
  Sex: Male
  Weight: 59.6 kg

DRUGS (21)
  1. LENVATINIB [Suspect]
     Active Substance: LENVATINIB
     Indication: Clear cell renal cell carcinoma
     Dosage: 20 MG FLUCTUATED DOSE
     Route: 048
     Dates: start: 20230518, end: 20230628
  2. QUAVONLIMAB [Suspect]
     Active Substance: QUAVONLIMAB
     Indication: Clear cell renal cell carcinoma
     Dosage: MK1308 25MG + PEMBROLIZUMAB 400MG
     Route: 042
     Dates: start: 20230518, end: 20231019
  3. BEPRIDIL [Concomitant]
     Active Substance: BEPRIDIL
     Dates: start: 202304
  4. HEPARINOID NICHIIKO [Concomitant]
     Dates: start: 20230428
  5. RINDERON V [Concomitant]
     Active Substance: BETAMETHASONE VALERATE
     Dates: start: 20230428
  6. DELGOCITINIB [Concomitant]
     Active Substance: DELGOCITINIB
     Dates: start: 20230428
  7. KETOCONAZOLE [Concomitant]
     Active Substance: KETOCONAZOLE
     Dates: start: 202304
  8. LOXOPROFEN SODIUM [Concomitant]
     Active Substance: LOXOPROFEN SODIUM
     Dates: start: 20230630
  9. FELBINAC [Concomitant]
     Active Substance: FELBINAC
     Dates: start: 20230630
  10. NEXIUM [Concomitant]
     Active Substance: ESOMEPRAZOLE MAGNESIUM
     Dates: start: 20230802
  11. REBAMIPIDE [Concomitant]
     Active Substance: REBAMIPIDE
     Dates: start: 20230802
  12. GLUTAMINE\SODIUM GUALENATE [Concomitant]
     Active Substance: GLUTAMINE\SODIUM GUALENATE
     Dates: start: 20230802
  13. MAGNESIUM OXIDE [Concomitant]
     Active Substance: MAGNESIUM OXIDE
     Dates: start: 20230802
  14. CORTRIL [Concomitant]
     Active Substance: HYDROCORTISONE
     Dates: start: 20230822
  15. HEPARINOID [Concomitant]
     Dates: start: 20230911
  16. ELIQUIS [Concomitant]
     Active Substance: APIXABAN
     Dates: start: 202006
  17. BISOPROLOL FUMARATE [Concomitant]
     Active Substance: BISOPROLOL FUMARATE
     Dates: start: 202304
  18. TIMOLOL MALEATE [Concomitant]
     Active Substance: TIMOLOL MALEATE
     Dates: start: 202304
  19. AZOPT [Concomitant]
     Active Substance: BRINZOLAMIDE
     Dates: start: 202304
  20. TRAVATAN Z [Concomitant]
     Active Substance: TRAVOPROST
     Dates: start: 202304
  21. PEMBROLIZUMAB [Suspect]
     Active Substance: PEMBROLIZUMAB

REACTIONS (1)
  - Atrial fibrillation [Recovered/Resolved]

NARRATIVE: CASE EVENT DATE: 20231104
